FAERS Safety Report 5265160-1 (Version None)
Quarter: 2007Q1

REPORT INFORMATION
  Report Type: 
  Country: None (occurrence: None)
  Receive Date: 20061121
  Receipt Date: 20061006
  Transmission Date: 20070707
  Serious: No
  Sender: FDA-Public Use
  Company Number: TPA2006A01750

PATIENT
  Age: 62 Year
  Sex: Male
  Weight: 83.9154 kg

DRUGS (3)
  1. ROZEREM [Suspect]
     Indication: INSOMNIA
     Dosage: 8 MG, HS, PER ORAL
     Route: 048
     Dates: start: 20060801, end: 20060901
  2. PREVACID (LANSOPRAZOLE) (30 MILLIGRAM, TABLETS) [Concomitant]
  3. TRAZODONE HCL [Concomitant]

REACTIONS (2)
  - INITIAL INSOMNIA [None]
  - POOR QUALITY SLEEP [None]
